FAERS Safety Report 12755546 (Version 1)
Quarter: 2016Q3

REPORT INFORMATION
  Report Type: Spontaneous
  Country: US (occurrence: US)
  Receive Date: 20160916
  Receipt Date: 20160916
  Transmission Date: 20161109
  Serious: No
  Sender: FDA-Public Use
  Company Number: US-009507513-1609USA007457

PATIENT
  Age: 24 Year
  Sex: Female
  Weight: 81.63 kg

DRUGS (2)
  1. NEXPLANON [Suspect]
     Active Substance: ETONOGESTREL
     Indication: CONTRACEPTION
     Dosage: EVERY 3 YEARS
     Route: 059
     Dates: start: 201311, end: 20151220
  2. NEXPLANON [Suspect]
     Active Substance: ETONOGESTREL
     Dosage: EVERY 3 YEARS / LEFT ARM IMPLANT
     Route: 059
     Dates: start: 20160904

REACTIONS (6)
  - Implant site pain [Unknown]
  - Incorrect drug administration duration [Unknown]
  - Mood swings [Unknown]
  - Implant site bruising [Unknown]
  - Acne [Unknown]
  - Acne [Unknown]

NARRATIVE: CASE EVENT DATE: 2015
